FAERS Safety Report 10335217 (Version 2)
Quarter: 2014Q3

REPORT INFORMATION
  Report Type: Spontaneous
  Country: US (occurrence: US)
  Receive Date: 20140723
  Receipt Date: 20140723
  Transmission Date: 20150326
  Serious: No
  Sender: FDA-Public Use
  Company Number: US-UNITED THERAPEUTICS-UTC-044769

PATIENT
  Sex: Female
  Weight: 115.66 kg

DRUGS (2)
  1. LETAIRIS [Concomitant]
     Active Substance: AMBRISENTAN
  2. REMODULIN [Suspect]
     Active Substance: TREPROSTINIL
     Dosage: 0.023 UG/KG/MINUTE
     Route: 041
     Dates: start: 20140106

REACTIONS (4)
  - Arthralgia [Not Recovered/Not Resolved]
  - Musculoskeletal pain [Unknown]
  - Pain in jaw [Unknown]
  - Palpitations [Unknown]

NARRATIVE: CASE EVENT DATE: 2014
